FAERS Safety Report 7664900-1 (Version None)
Quarter: 2011Q3

REPORT INFORMATION
  Report Type: 
  Country: None (occurrence: None)
  Receive Date: 20110806
  Receipt Date: 20110121
  Transmission Date: 20111222
  Serious: No
  Sender: FDA-Public Use
  Company Number: US-ABBOTT-03P-163-0387654-00

PATIENT
  Sex: Female
  Weight: 67.192 kg

DRUGS (3)
  1. NIASPAN [Suspect]
     Dosage: 2000MG QHS
  2. NIASPAN [Suspect]
     Indication: LOW DENSITY LIPOPROTEIN INCREASED
     Route: 048
     Dates: start: 20031006
  3. NONE [Concomitant]

REACTIONS (1)
  - FLUSHING [None]
